FAERS Safety Report 7545582-6 (Version None)
Quarter: 2011Q2

REPORT INFORMATION
  Report Type: 
  Country: None (occurrence: None)
  Receive Date: 20110524
  Receipt Date: 20110303
  Transmission Date: 20111010
  Serious: No
  Sender: FDA-Public Use
  Company Number: 027539

PATIENT
  Sex: Female
  Weight: 92.1 kg

DRUGS (2)
  1. CIMZIA [Suspect]
     Indication: CROHN'S DISEASE
     Dosage: (400 MG 1X/2 WEEKS SUBCUTANEOUS)
     Route: 058
     Dates: start: 20110211
  2. NEXIUM [Concomitant]

REACTIONS (5)
  - PYREXIA [None]
  - PHARYNGITIS STREPTOCOCCAL [None]
  - INJECTION SITE PAIN [None]
  - ABDOMINAL DISTENSION [None]
  - INJECTION SITE DISCOLOURATION [None]
